FAERS Safety Report 7905466-8 (Version None)
Quarter: 2011Q4

REPORT INFORMATION
  Report Type: 
  Country: None (occurrence: None)
  Receive Date: 20111110
  Receipt Date: 20111103
  Transmission Date: 20120403
  Serious: Yes (Hospitalization)
  Sender: FDA-Public Use
  Company Number: 2007BI007984

PATIENT
  Age: 37 Year
  Sex: Female
  Weight: 58 kg

DRUGS (3)
  1. AVONEX [Suspect]
     Route: 030
     Dates: start: 19980119, end: 20030101
  2. AVONEX [Suspect]
     Indication: MULTIPLE SCLEROSIS
     Route: 030
     Dates: start: 20030101
  3. AMPYRA [Concomitant]
     Indication: ABASIA
     Dates: start: 20110501

REACTIONS (10)
  - HAEMORRHAGE [None]
  - FEMUR FRACTURE [None]
  - JOINT SWELLING [None]
  - FALL [None]
  - INFLUENZA LIKE ILLNESS [None]
  - POST PROCEDURAL COMPLICATION [None]
  - PAIN [None]
  - OSTEOPOROSIS [None]
  - HYSTERECTOMY [None]
  - HEMIPARESIS [None]
